FAERS Safety Report 8702385 (Version 2)
Quarter: 2012Q4

REPORT INFORMATION
  Report Type: 
  Country: CA (occurrence: CA)
  Receive Date: 20120803
  Receipt Date: 20120830
  Transmission Date: 20130627
  Serious: Yes (Other)
  Sender: FDA-Public Use
  Company Number: CA-ELI_LILLY_AND_COMPANY-CA201207009010

PATIENT
  Age: 82 Year
  Sex: Female
  Weight: 56.3 kg

DRUGS (11)
  1. FORTEO [Suspect]
     Indication: OSTEOPOROSIS
     Dosage: 20 ug, qd
     Route: 058
     Dates: start: 20110620
  2. ENALAPRIL [Concomitant]
     Dosage: UNK, unknown
     Route: 065
  3. SIMVASTATIN [Concomitant]
     Dosage: UNK, unknown
     Route: 065
  4. LASIX [Concomitant]
     Dosage: UNK, unknown
     Route: 065
  5. CALCIUM [Concomitant]
     Dosage: UNK, unknown
     Route: 065
  6. VITAMIN D [Concomitant]
     Dosage: UNK, unknown
     Route: 065
  7. ASA [Concomitant]
     Dosage: UNK, unknown
     Route: 065
  8. TYLENOL ARTHRITIS [Concomitant]
     Dosage: UNK, unknown
     Route: 065
  9. GLUCOSAMINE + CHONDROITIN [Concomitant]
     Dosage: UNK, unknown
     Route: 065
  10. NEXIUM [Concomitant]
  11. HYDROCHLOROTHIAZIDE [Concomitant]

REACTIONS (1)
  - Transient ischaemic attack [Recovered/Resolved]
